FAERS Safety Report 23222686 (Version 1)
Quarter: 2023Q4

REPORT INFORMATION
  Report Type: Spontaneous
  Country: US (occurrence: US)
  Receive Date: 20231123
  Receipt Date: 20231123
  Transmission Date: 20240110
  Serious: No
  Sender: FDA-Public Use
  Company Number: US-KERYX BIOPHARMACEUTICALS INC.-US-AKEB-23-000888

PATIENT
  Sex: Male
  Weight: 73.923 kg

DRUGS (1)
  1. AURYXIA [Suspect]
     Active Substance: TETRAFERRIC TRICITRATE DECAHYDRATE
     Indication: Hyperphosphataemia
     Dosage: 210 MILLIGRAM, TID
     Route: 048
     Dates: start: 202001

REACTIONS (2)
  - Blood iron increased [Unknown]
  - Incorrect dose administered [Unknown]
